FAERS Safety Report 9289991 (Version 1)
Quarter: 2013Q2

REPORT INFORMATION
  Report Type: Spontaneous
  Country: US (occurrence: None)
  Receive Date: 20130514
  Receipt Date: 20130514
  Transmission Date: 20140414
  Serious: Yes (Death, Hospitalization)
  Sender: FDA-Public Use
  Company Number: None

PATIENT
  Age: 73 Year
  Sex: Female

DRUGS (1)
  1. MACROBID [Suspect]
     Dates: start: 20120118, end: 20120515

REACTIONS (11)
  - Drug-induced liver injury [None]
  - Jaundice [None]
  - Encephalopathy [None]
  - Urinary tract infection [None]
  - Hepatic cirrhosis [None]
  - Hepatic necrosis [None]
  - Non-alcoholic steatohepatitis [None]
  - Renal failure acute [None]
  - Hepatic failure [None]
  - Budd-Chiari syndrome [None]
  - Hepatic vein occlusion [None]
